FAERS Safety Report 21358766 (Version 1)
Quarter: 2022Q3

REPORT INFORMATION
  Report Type: Other
  Country: CA (occurrence: None)
  Receive Date: 20220921
  Receipt Date: 20220921
  Transmission Date: 20221026
  Serious: Yes (Other)
  Sender: FDA-Public Use
  Company Number: CA-ROCHE-3178094

PATIENT
  Sex: Male

DRUGS (1)
  1. ZELBORAF [Suspect]
     Active Substance: VEMURAFENIB
     Indication: Metastatic malignant melanoma
     Route: 048
     Dates: start: 20211011, end: 202201

REACTIONS (3)
  - Rash [Unknown]
  - Metastatic malignant melanoma [Unknown]
  - Drug ineffective [Unknown]
